FAERS Safety Report 19429425 (Version 1)
Quarter: 2021Q2

REPORT INFORMATION
  Report Type: Report from Study
  Country: CA (occurrence: CA)
  Receive Date: 20210617
  Receipt Date: 20210617
  Transmission Date: 20210717
  Serious: Yes (Hospitalization)
  Sender: FDA-Public Use
  Company Number: CA-ELI_LILLY_AND_COMPANY-CA202106004471

PATIENT

DRUGS (3)
  1. CARBOPLATIN. [Concomitant]
     Active Substance: CARBOPLATIN
     Indication: NON-SMALL CELL LUNG CANCER STAGE IV
     Dosage: UNK, CYCLICAL
     Route: 065
  2. BINIMETINIB [Concomitant]
     Active Substance: BINIMETINIB
     Indication: NON-SMALL CELL LUNG CANCER STAGE IV
     Dosage: 45 MG, CYCLICAL
     Route: 065
  3. PEMETREXED. [Suspect]
     Active Substance: PEMETREXED
     Indication: NON-SMALL CELL LUNG CANCER STAGE IV
     Dosage: 500 MG/M2, CYCLICAL
     Route: 065

REACTIONS (2)
  - Diverticulitis [Unknown]
  - Febrile neutropenia [Unknown]
